FAERS Safety Report 21705458 (Version 1)
Quarter: 2022Q4

REPORT INFORMATION
  Report Type: Report from Study
  Country: US (occurrence: US)
  Receive Date: 20221209
  Receipt Date: 20221209
  Transmission Date: 20230112
  Serious: Yes (Other)
  Sender: FDA-Public Use
  Company Number: US-002147023-NVSC2022US130968

PATIENT
  Age: 11 Year
  Sex: Male

DRUGS (1)
  1. COSENTYX [Suspect]
     Active Substance: SECUKINUMAB
     Indication: Psoriasis
     Dosage: 75 MG, QW (FOR 5 WEEKS THEN EVERY 4 WEEKS)
     Route: 058
     Dates: start: 20220522

REACTIONS (9)
  - Crohn^s disease [Unknown]
  - Irritable bowel syndrome [Unknown]
  - Alopecia [Unknown]
  - Needle issue [Unknown]
  - Joint swelling [Unknown]
  - Arthralgia [Unknown]
  - Joint warmth [Unknown]
  - Joint stiffness [Unknown]
  - Drug effect less than expected [Unknown]

NARRATIVE: CASE EVENT DATE: 20220606
